FAERS Safety Report 4377483-9 (Version None)
Quarter: 2004Q2

REPORT INFORMATION
  Report Type: 
  Country: None (occurrence: None)
  Receive Date: 20040609
  Receipt Date: 20040525
  Transmission Date: 20050107
  Serious: Yes (Hospitalization)
  Sender: FDA-Public Use
  Company Number: EWC040539398

PATIENT
  Age: 22 Year
  Sex: Male

DRUGS (2)
  1. ZYPREXA [Suspect]
     Indication: SCHIZOPHRENIA, DISORGANISED TYPE
     Dosage: 20 MG/ 1 DAY
  2. CLONAZEPAM [Concomitant]

REACTIONS (5)
  - BACK INJURY [None]
  - FEMORAL NECK FRACTURE [None]
  - INTENTIONAL SELF-INJURY [None]
  - LUNG INJURY [None]
  - SKELETAL INJURY [None]
